FAERS Safety Report 4612594-1 (Version None)
Quarter: 2005Q1

REPORT INFORMATION
  Report Type: 
  Country: None (occurrence: None)
  Receive Date: 20050318
  Receipt Date: 20040927
  Transmission Date: 20050727
  Serious: Yes (Hospitalization)
  Sender: FDA-Public Use
  Company Number: 200413019JP

PATIENT
  Age: 54 Year
  Sex: Male

DRUGS (3)
  1. KETEK [Suspect]
     Indication: PNEUMONIA
     Route: 048
     Dates: start: 20040921, end: 20040921
  2. VOLTAREN [Suspect]
     Indication: PYREXIA
     Route: 048
     Dates: start: 20040921, end: 20040921
  3. KOLANTYL [Suspect]
     Indication: PYREXIA
     Route: 048
     Dates: start: 20040921, end: 20040921

REACTIONS (25)
  - ANION GAP DECREASED [None]
  - BACTERIA URINE IDENTIFIED [None]
  - BACTERIAL INFECTION [None]
  - BLOOD ALBUMIN DECREASED [None]
  - BLOOD BICARBONATE INCREASED [None]
  - BLOOD FIBRINOGEN INCREASED [None]
  - BLOOD PH DECREASED [None]
  - BLOOD PH INCREASED [None]
  - C-REACTIVE PROTEIN INCREASED [None]
  - DYSPNOEA [None]
  - EOSINOPHILIC PNEUMONIA ACUTE [None]
  - FIBRIN D DIMER INCREASED [None]
  - FIBRIN DEGRADATION PRODUCTS INCREASED [None]
  - FUNGAL INFECTION [None]
  - GAMMA-GLUTAMYLTRANSFERASE INCREASED [None]
  - HYPOXIA [None]
  - LABORATORY TEST ABNORMAL [None]
  - LEGIONELLA INFECTION [None]
  - LYMPHOCYTE PERCENTAGE DECREASED [None]
  - MONOCYTE PERCENTAGE DECREASED [None]
  - MONOCYTE PERCENTAGE INCREASED [None]
  - NEUTROPHIL PERCENTAGE INCREASED [None]
  - PCO2 INCREASED [None]
  - PO2 DECREASED [None]
  - PO2 INCREASED [None]
